FAERS Safety Report 21477132 (Version 1)
Quarter: 2022Q4

REPORT INFORMATION
  Report Type: Spontaneous
  Country: US (occurrence: US)
  Receive Date: 20221019
  Receipt Date: 20221019
  Transmission Date: 20230113
  Serious: No
  Sender: FDA-Public Use
  Company Number: US-MYLANLABS-2022M1114270

PATIENT
  Age: 70 Year
  Sex: Female

DRUGS (8)
  1. ATORVASTATIN [Suspect]
     Active Substance: ATORVASTATIN
     Indication: Product used for unknown indication
     Dosage: UNK
     Route: 065
  2. PAXLOVID [Suspect]
     Active Substance: NIRMATRELVIR\RITONAVIR
     Indication: COVID-19
     Dosage: UNK
     Route: 065
     Dates: start: 20220819, end: 20220820
  3. Top care [Concomitant]
     Dosage: UNK
     Route: 065
     Dates: start: 202104, end: 202210
  4. NATURAL FACTORS LUTEIN [Concomitant]
     Dosage: UNK
     Route: 065
     Dates: start: 202104, end: 202210
  5. BAYER AM [Concomitant]
     Dosage: UNK
     Route: 065
     Dates: start: 202004, end: 202210
  6. NATURE MADE C [Concomitant]
     Dosage: UNK
     Route: 065
  7. Spring valley zinc [Concomitant]
     Dosage: UNK
     Route: 065
     Dates: start: 202004, end: 202210
  8. GUNDRY MD VITAL REDS [Concomitant]
     Dosage: UNK
     Route: 065
     Dates: start: 202206, end: 202210

REACTIONS (4)
  - Nightmare [Recovered/Resolved]
  - Body temperature increased [Recovered/Resolved]
  - Blood pressure increased [Recovered/Resolved]
  - Heart rate increased [Recovered/Resolved]

NARRATIVE: CASE EVENT DATE: 20220819
